FAERS Safety Report 18924693 (Version 1)
Quarter: 2021Q1

REPORT INFORMATION
  Report Type: Spontaneous
  Country: US (occurrence: US)
  Receive Date: 20210223
  Receipt Date: 20210223
  Transmission Date: 20210420
  Serious: Yes (Hospitalization, Other)
  Sender: FDA-Public Use
  Company Number: US-GRANULES-US-2021GRALIT00148

PATIENT
  Age: 38 Year
  Sex: Female

DRUGS (6)
  1. ACETAMINOPHEN. [Suspect]
     Active Substance: ACETAMINOPHEN
     Indication: PAIN
     Route: 045
  2. DOXYCYCLINE. [Interacting]
     Active Substance: DOXYCYCLINE
     Indication: STAPHYLOCOCCAL INFECTION
     Route: 065
  3. ITRACONAZOLE. [Interacting]
     Active Substance: ITRACONAZOLE
     Indication: ASPERGILLUS INFECTION
     Route: 065
  4. ITRACONAZOLE. [Interacting]
     Active Substance: ITRACONAZOLE
     Indication: CANDIDA INFECTION
     Route: 065
  5. AMOXICILLIN. [Interacting]
     Active Substance: AMOXICILLIN
     Indication: STAPHYLOCOCCAL INFECTION
     Route: 065
  6. FLUCONAZOLE. [Interacting]
     Active Substance: FLUCONAZOLE
     Indication: ASPERGILLUS INFECTION
     Route: 065

REACTIONS (5)
  - Intentional product misuse [Unknown]
  - Sinusitis fungal [Recovered/Resolved]
  - Staphylococcal infection [Recovered/Resolved]
  - Candida infection [Recovered/Resolved]
  - Soft tissue necrosis [Recovered/Resolved]
